FAERS Safety Report 16971860 (Version 1)
Quarter: 2019Q4

REPORT INFORMATION
  Report Type: Report from Study
  Country: FR (occurrence: FR)
  Receive Date: 20191029
  Receipt Date: 20191029
  Transmission Date: 20200122
  Serious: Yes (Hospitalization, Other)
  Sender: FDA-Public Use
  Company Number: FR-BAUSCH-BL-2019-059002

PATIENT
  Age: 61 Year
  Sex: Female
  Weight: 43 kg

DRUGS (7)
  1. SOLUPRED (PREDNISOLONE) [Suspect]
     Active Substance: PREDNISOLONE
     Indication: BRONCHIAL DISORDER
     Route: 048
     Dates: start: 200901, end: 20110614
  2. SOLUPRED (PREDNISOLONE) [Suspect]
     Active Substance: PREDNISOLONE
     Route: 048
     Dates: start: 20110614, end: 20110804
  3. CELLCEPT [Suspect]
     Active Substance: MYCOPHENOLATE MOFETIL\MYCOPHENOLATE MOFETIL HYDROCHLORIDE
     Indication: MYASTHENIC SYNDROME
     Route: 065
     Dates: start: 20090116, end: 20120914
  4. MOTILIUM [Concomitant]
     Active Substance: DOMPERIDONE
     Indication: DIZZINESS
     Dosage: AS NEEDED
     Route: 048
     Dates: start: 2007
  5. MESTINON [Suspect]
     Active Substance: PYRIDOSTIGMINE BROMIDE
     Indication: MYASTHENIC SYNDROME
     Route: 065
     Dates: start: 20071220, end: 20140328
  6. SOLUPRED (PREDNISOLONE) [Suspect]
     Active Substance: PREDNISOLONE
     Route: 048
     Dates: start: 20110805, end: 20120329
  7. FIRDAPSE [Suspect]
     Active Substance: AMIFAMPRIDINE
     Indication: MYASTHENIC SYNDROME
     Route: 048
     Dates: start: 20101118, end: 20140328

REACTIONS (1)
  - Bronchopulmonary aspergillosis [Recovered/Resolved with Sequelae]

NARRATIVE: CASE EVENT DATE: 20110914
